FAERS Safety Report 8540585-7 (Version None)
Quarter: 2012Q3

REPORT INFORMATION
  Report Type: 
  Country: None (occurrence: None)
  Receive Date: 20120726
  Receipt Date: 20110802
  Transmission Date: 20120928
  Serious: No
  Sender: FDA-Public Use
  Company Number: US-ASTRAZENECA-2011SE46435

PATIENT
  Age: 11 Year
  Sex: Male

DRUGS (2)
  1. SEROQUEL [Suspect]
     Route: 048
  2. SEROQUEL [Suspect]
     Route: 048

REACTIONS (2)
  - DRUG ADMINISTERED TO PATIENT OF INAPPROPRIATE AGE [None]
  - TARDIVE DYSKINESIA [None]
